FAERS Safety Report 16130512 (Version 1)
Quarter: 2019Q1

REPORT INFORMATION
  Report Type: Spontaneous
  Country: CN (occurrence: CN)
  Receive Date: 20190328
  Receipt Date: 20190328
  Transmission Date: 20190418
  Serious: Yes (Hospitalization)
  Sender: FDA-Public Use
  Company Number: CN-PFIZER INC-2019128807

PATIENT
  Age: 72 Year
  Sex: Female
  Weight: 52 kg

DRUGS (3)
  1. SOLU-MEDROL [Suspect]
     Active Substance: METHYLPREDNISOLONE SODIUM SUCCINATE
     Indication: MENIERE^S DISEASE
     Dosage: 10 MG, TWICE A WEEK
     Dates: start: 20181008, end: 20181012
  2. LIDOCAINE. [Concomitant]
     Active Substance: LIDOCAINE
     Dosage: 1 ML, UNK
     Dates: start: 20181008
  3. DEXTRAN 40 GLUCOSE [Concomitant]
     Indication: MENIERE^S DISEASE
     Dosage: 500 ML, 1X/DAY
     Route: 041
     Dates: start: 20181009, end: 20181012

REACTIONS (2)
  - Anxiety [Not Recovered/Not Resolved]
  - Insomnia [Not Recovered/Not Resolved]

NARRATIVE: CASE EVENT DATE: 20181008
